FAERS Safety Report 17165346 (Version 1)
Quarter: 2019Q4

REPORT INFORMATION
  Report Type: Spontaneous
  Country: JP (occurrence: JP)
  Receive Date: 20191217
  Receipt Date: 20191217
  Transmission Date: 20200122
  Serious: Yes (Hospitalization)
  Sender: FDA-Public Use
  Company Number: JP-PFIZER INC-2019535854

PATIENT
  Age: 82 Year
  Sex: Male

DRUGS (1)
  1. CHAMPIX 1MG [Suspect]
     Active Substance: VARENICLINE TARTRATE

REACTIONS (3)
  - Physical deconditioning [Recovering/Resolving]
  - Haemoglobin decreased [Recovering/Resolving]
  - Ulcer [Recovering/Resolving]
